FAERS Safety Report 11850841 (Version 1)
Quarter: 2015Q4

REPORT INFORMATION
  Report Type: Spontaneous
  Country: US (occurrence: US)
  Receive Date: 20151218
  Receipt Date: 20151218
  Transmission Date: 20160305
  Serious: No
  Sender: FDA-Public Use
  Company Number: US-JNJFOC-20141214973

PATIENT
  Age: 59 Year
  Sex: Female
  Weight: 66.68 kg

DRUGS (2)
  1. WOMENS ROGAINE EXTRA STRENGTH [Suspect]
     Active Substance: MINOXIDIL
     Indication: ALOPECIA
     Dosage: HALF A CAP ONCE
     Route: 061
     Dates: start: 20141216, end: 20141216
  2. WOMENS ROGAINE EXTRA STRENGTH [Suspect]
     Active Substance: MINOXIDIL
     Route: 061

REACTIONS (2)
  - Product quality issue [Unknown]
  - Hair texture abnormal [Recovered/Resolved]

NARRATIVE: CASE EVENT DATE: 20141216
